FAERS Safety Report 5990723-5 (Version None)
Quarter: 2008Q4

REPORT INFORMATION
  Report Type: 
  Country: None (occurrence: None)
  Receive Date: 20081211
  Receipt Date: 20081204
  Transmission Date: 20090506
  Serious: Yes (Other)
  Sender: FDA-Public Use
  Company Number: PHHY2008FR26807

PATIENT
  Age: 60 Year
  Sex: Female

DRUGS (7)
  1. COMTAN [Suspect]
     Indication: PARKINSON'S DISEASE
     Dosage: 5 TABLETS/DAY
     Route: 048
     Dates: start: 20080801
  2. COMTAN [Suspect]
     Dosage: 4-5 TABLETS/DAY
     Route: 048
     Dates: start: 20081001
  3. SIFROL [Suspect]
     Dosage: 3TABLETS/DAY
     Route: 048
  4. SIFROL [Suspect]
     Dosage: 3-4 TABLETS/DAY
     Route: 048
     Dates: start: 20081028
  5. MODOPAR [Suspect]
     Dosage: 125 MG, 5QD
  6. MODOPAR [Suspect]
     Dosage: 375 MG/DAY
  7. XANAX [Concomitant]

REACTIONS (6)
  - ERYTHEMA [None]
  - HYPERTONIA [None]
  - MOVEMENT DISORDER [None]
  - MUSCULOSKELETAL STIFFNESS [None]
  - PARAESTHESIA [None]
  - TETANY [None]
